FAERS Safety Report 9546631 (Version 3)
Quarter: 2013Q3

REPORT INFORMATION
  Report Type: Spontaneous
  Country: SE (occurrence: SE)
  Receive Date: 20130924
  Receipt Date: 20130927
  Transmission Date: 20140515
  Serious: Yes (Other)
  Sender: FDA-Public Use
  Company Number: SE-AMGEN-SWESP2013042440

PATIENT
  Age: 69 Year
  Sex: Female

DRUGS (9)
  1. PROLIA [Suspect]
     Indication: OSTEOPOROSIS
     Dosage: 60 MG, Q6MO
     Route: 058
     Dates: start: 20120110, end: 20130103
  2. CALCIUM [Concomitant]
  3. VITAMIN D                          /00107901/ [Concomitant]
  4. CALCICHEW D3 APELSIN [Concomitant]
     Indication: OSTEOPOROSIS
     Dosage: 500 IU, BID
     Route: 048
     Dates: start: 20111128
  5. BEHEPAN [Concomitant]
     Indication: GASTRITIS ATROPHIC
     Dosage: 1 MG, QD
     Route: 048
     Dates: start: 2009
  6. NORMORIX [Concomitant]
     Indication: HYPERTENSION
     Dosage: 2,5/25 MG, QD
     Route: 048
     Dates: start: 2010
  7. FELODIPINE [Concomitant]
     Indication: HYPERTENSION
     Dosage: 10 MG, QD
     Route: 048
     Dates: start: 2010
  8. OMEPRAZOLE [Concomitant]
     Indication: GASTRITIS
     Dosage: 20 MG, AS NEEDED
     Route: 048
     Dates: start: 2009
  9. LEVAXIN [Concomitant]
     Dosage: 100 MUG, UNK

REACTIONS (1)
  - Cataract [Not Recovered/Not Resolved]
